FAERS Safety Report 6174381-5 (Version None)
Quarter: 2009Q2

REPORT INFORMATION
  Report Type: 
  Country: None (occurrence: None)
  Receive Date: 20090430
  Receipt Date: 20090424
  Transmission Date: 20091009
  Serious: Yes (Hospitalization)
  Sender: FDA-Public Use
  Company Number: CA-ABBOTT-09P-028-0567514-00

PATIENT
  Sex: Female
  Weight: 46.308 kg

DRUGS (22)
  1. HUMIRA [Suspect]
     Indication: RHEUMATOID ARTHRITIS
     Route: 058
     Dates: start: 20070809
  2. PAXIL [Concomitant]
     Indication: DRUG USE FOR UNKNOWN INDICATION
  3. ACTONEL [Concomitant]
     Indication: DRUG USE FOR UNKNOWN INDICATION
  4. REMERON [Concomitant]
     Indication: DRUG USE FOR UNKNOWN INDICATION
     Dosage: DAILY AT BEDTIME
  5. PALAFER [Concomitant]
     Indication: DRUG USE FOR UNKNOWN INDICATION
  6. ELTROXIN [Concomitant]
     Indication: DRUG USE FOR UNKNOWN INDICATION
  7. PLAQUENIL [Concomitant]
     Indication: DRUG USE FOR UNKNOWN INDICATION
  8. LORAZEPAM [Concomitant]
     Indication: DRUG USE FOR UNKNOWN INDICATION
     Dosage: AT SUPPER
  9. CALCIUM CARBONATE [Concomitant]
     Indication: DRUG USE FOR UNKNOWN INDICATION
     Dosage: AT NOON
  10. DOCUSATE SODIUM [Concomitant]
     Indication: DRUG USE FOR UNKNOWN INDICATION
  11. FOLIC ACID [Concomitant]
     Indication: DRUG USE FOR UNKNOWN INDICATION
  12. RISPERDAL [Concomitant]
     Indication: DRUG USE FOR UNKNOWN INDICATION
  13. ARTHROTEC [Concomitant]
     Indication: DRUG USE FOR UNKNOWN INDICATION
  14. ARAVA [Concomitant]
     Indication: DRUG USE FOR UNKNOWN INDICATION
  15. AMLODIPINE [Concomitant]
     Indication: DRUG USE FOR UNKNOWN INDICATION
  16. VITAMIN D [Concomitant]
     Indication: DRUG USE FOR UNKNOWN INDICATION
  17. CALACIT [Concomitant]
     Indication: DRUG USE FOR UNKNOWN INDICATION
  18. CIPRALEX [Concomitant]
     Indication: DRUG USE FOR UNKNOWN INDICATION
     Dosage: 1/2 TAB BID
  19. PREVACID [Concomitant]
     Indication: DRUG USE FOR UNKNOWN INDICATION
  20. LEVOCHLOROQUIN [Concomitant]
     Indication: DRUG USE FOR UNKNOWN INDICATION
  21. QUETIAPINE FUMARATE [Concomitant]
     Indication: DRUG USE FOR UNKNOWN INDICATION
     Dosage: 2 TABS AT BREAKFAST
  22. VENLAFAXINE HCL [Concomitant]
     Indication: DRUG USE FOR UNKNOWN INDICATION

REACTIONS (5)
  - BLOOD COUNT ABNORMAL [None]
  - DIEULAFOY'S VASCULAR MALFORMATION [None]
  - HIATUS HERNIA [None]
  - UPPER GASTROINTESTINAL HAEMORRHAGE [None]
  - VESSEL PERFORATION [None]
